FAERS Safety Report 6620283-7 (Version None)
Quarter: 2010Q1

REPORT INFORMATION
  Report Type: 
  Country: None (occurrence: None)
  Receive Date: 20100304
  Receipt Date: 20100222
  Transmission Date: 20100710
  Serious: Yes (Hospitalization, Other)
  Sender: FDA-Public Use
  Company Number: 2010US000215

PATIENT
  Age: 56 Year
  Sex: Male
  Weight: 263 kg

DRUGS (6)
  1. VIBATIV [Suspect]
     Indication: STAPHYLOCOCCAL OSTEOMYELITIS
     Dosage: 10 MG/KG, UID/QD, IV NOS
     Route: 042
     Dates: start: 20100122, end: 20100125
  2. METFORMIN HCL [Concomitant]
  3. HYDROCHLOROTHIAZIDE [Concomitant]
  4. LISINOPRIL [Concomitant]
  5. AMLODIPINE [Concomitant]
  6. ACTOS [Concomitant]

REACTIONS (9)
  - BLOOD PH DECREASED [None]
  - DIALYSIS [None]
  - DRUG TOXICITY [None]
  - FLUID OVERLOAD [None]
  - LEFT VENTRICULAR HYPERTROPHY [None]
  - NEPHROPATHY TOXIC [None]
  - PCO2 INCREASED [None]
  - RENAL FAILURE ACUTE [None]
  - RESPIRATORY FAILURE [None]
